FAERS Safety Report 5787549-4 (Version None)
Quarter: 2008Q2

REPORT INFORMATION
  Report Type: 
  Country: None (occurrence: None)
  Receive Date: 20080625
  Receipt Date: 20071109
  Transmission Date: 20081010
  Serious: No
  Sender: FDA-Public Use
  Company Number: US-ASTRAZENECA-2007UW22691

PATIENT
  Age: 75 Year
  Sex: Female

DRUGS (1)
  1. PULMICORT FLEXHALER [Suspect]
     Dosage: 2 PUFFS TWICE A DAY
     Route: 055
     Dates: start: 20070922

REACTIONS (1)
  - FEELING ABNORMAL [None]
